FAERS Safety Report 14278649 (Version 3)
Quarter: 2018Q4

REPORT INFORMATION
  Report Type: Spontaneous
  Country: ES (occurrence: ES)
  Receive Date: 20171212
  Receipt Date: 20181227
  Transmission Date: 20190204
  Serious: Yes (Hospitalization)
  Sender: FDA-Public Use
  Company Number: ES-SA-2017SA243639

PATIENT
  Age: 24 Year
  Sex: Female
  Weight: 60 kg

DRUGS (12)
  1. LANTUS [Suspect]
     Active Substance: INSULIN GLARGINE
     Dosage: 20 UNK
     Route: 058
     Dates: start: 20171101
  2. ACTRAPID [Suspect]
     Active Substance: INSULIN HUMAN
     Indication: TYPE 1 DIABETES MELLITUS
     Dosage: 15 IU,QD
     Dates: start: 20171118, end: 20171120
  3. HUMALOG [Suspect]
     Active Substance: INSULIN LISPRO
     Indication: TYPE 1 DIABETES MELLITUS
     Dosage: 15 IU,QD
     Route: 058
     Dates: start: 20170811, end: 20171118
  4. HUMALOG [Suspect]
     Active Substance: INSULIN LISPRO
     Dosage: 15 IU, QD
     Route: 058
     Dates: start: 20171120
  5. HUMALOG [Suspect]
     Active Substance: INSULIN LISPRO
     Route: 065
     Dates: start: 20170828, end: 20171118
  6. NATALBEN PLUS [Concomitant]
     Indication: PROPHYLAXIS
     Dosage: UNK UNK,UNK
     Route: 065
     Dates: start: 20171002
  7. LANTUS [Suspect]
     Active Substance: INSULIN GLARGINE
     Dosage: 28 IU,QD
     Route: 058
     Dates: start: 20171101
  8. TRESIBA [Suspect]
     Active Substance: INSULIN DEGLUDEC
     Indication: TYPE 1 DIABETES MELLITUS
     Dosage: 28 IU,QD
     Route: 065
     Dates: start: 20170722, end: 20170811
  9. YODOCEFOL [Concomitant]
     Active Substance: CYANOCOBALAMIN\FOLIC ACID\POTASSIUM IODIDE
     Indication: PROPHYLAXIS
     Dosage: UNK UNK,UNK
     Dates: start: 20170727
  10. LANTUS [Suspect]
     Active Substance: INSULIN GLARGINE
     Dosage: 32 IU,QD
     Route: 058
     Dates: start: 20170811
  11. HUMALOG [Suspect]
     Active Substance: INSULIN LISPRO
     Dosage: 15 IU, QD
     Dates: start: 20130627, end: 20171118
  12. LANTUS [Suspect]
     Active Substance: INSULIN GLARGINE
     Dosage: 22 IU,QD
     Route: 058
     Dates: start: 20180205

REACTIONS (4)
  - Diabetic ketoacidosis [Recovered/Resolved]
  - Exposure during pregnancy [Unknown]
  - Hypertension [Recovered/Resolved]
  - Cardiac failure acute [Recovered/Resolved]

NARRATIVE: CASE EVENT DATE: 20170628
